FAERS Safety Report 14526430 (Version 2)
Quarter: 2018Q1

REPORT INFORMATION
  Report Type: Spontaneous
  Country: US (occurrence: US)
  Receive Date: 20180213
  Receipt Date: 20180213
  Transmission Date: 20180509
  Serious: Yes (Other)
  Sender: FDA-Public Use
  Company Number: PHEH2018US004940

PATIENT
  Sex: Male

DRUGS (1)
  1. TETRACAINE. [Suspect]
     Active Substance: TETRACAINE
     Indication: PRODUCT USED FOR UNKNOWN INDICATION
     Route: 047

REACTIONS (7)
  - Blindness [Unknown]
  - Ulcerative keratitis [Unknown]
  - Foreign body sensation in eyes [Unknown]
  - Corneal abrasion [Unknown]
  - Hypopyon [Unknown]
  - Wrong technique in product usage process [Unknown]
  - Corneal erosion [Unknown]

NARRATIVE: CASE EVENT DATE: 20131030
